FAERS Safety Report 22189105 (Version 5)
Quarter: 2024Q2

REPORT INFORMATION
  Report Type: Report from Study
  Country: CA (occurrence: CA)
  Receive Date: 20230410
  Receipt Date: 20240529
  Transmission Date: 20240716
  Serious: Yes (Hospitalization, Other)
  Sender: FDA-Public Use
  Company Number: CA-JNJFOC-20220230658

PATIENT
  Age: 26 Year
  Sex: Female
  Weight: 75 kg

DRUGS (4)
  1. REMICADE [Suspect]
     Active Substance: INFLIXIMAB
     Indication: Crohn^s disease
     Dosage: ALSO RECEIVED ON 22-DEC-2021 AND 08-APR-2022. EXP DATE-31-JUL-2025
     Route: 042
     Dates: start: 20170221
  2. REMICADE [Suspect]
     Active Substance: INFLIXIMAB
     Dosage: EXPIRY DATE: 01-NOV-2025
     Route: 041
  3. REMICADE [Suspect]
     Active Substance: INFLIXIMAB
     Route: 042
  4. CLINDAMYCIN [Suspect]
     Active Substance: CLINDAMYCIN
     Indication: Staphylococcal infection
     Route: 065

REACTIONS (11)
  - Exposure during pregnancy [Recovered/Resolved]
  - Crohn^s disease [Unknown]
  - Staphylococcal infection [Not Recovered/Not Resolved]
  - Lymphadenopathy [Unknown]
  - Ear infection [Not Recovered/Not Resolved]
  - Vomiting [Unknown]
  - Nausea [Unknown]
  - Ear haemorrhage [Unknown]
  - Blood iron decreased [Not Recovered/Not Resolved]
  - Hidradenitis [Not Recovered/Not Resolved]
  - Inappropriate schedule of product administration [Unknown]

NARRATIVE: CASE EVENT DATE: 20210630
